FAERS Safety Report 4287811-0 (Version None)
Quarter: 2004Q1

REPORT INFORMATION
  Report Type: 
  Country: None (occurrence: None)
  Receive Date: 20040209
  Receipt Date: 20030930
  Transmission Date: 20041129
  Serious: No
  Sender: FDA-Public Use
  Company Number: US-GLAXOSMITHKLINE-A0428299A

PATIENT
  Sex: Male

DRUGS (1)
  1. PAXIL [Suspect]
     Dosage: 35MG UNKNOWN
     Route: 048

REACTIONS (3)
  - DYSURIA [None]
  - URINARY RETENTION [None]
  - URINARY TRACT PAIN [None]
